FAERS Safety Report 9256022 (Version 2)
Quarter: 2013Q2

REPORT INFORMATION
  Report Type: Report from Study
  Country: US (occurrence: US)
  Receive Date: 20130425
  Receipt Date: 20130506
  Transmission Date: 20140414
  Serious: Yes (Hospitalization)
  Sender: FDA-Public Use
  Company Number: US-009507513-1304USA013205

PATIENT
  Age: 59 Year
  Sex: Male
  Weight: 90.26 kg

DRUGS (10)
  1. BOCEPREVIR [Suspect]
     Indication: HEPATITIS C
     Dosage: 800 MG, Q8H
     Route: 048
     Dates: start: 20130322, end: 20130416
  2. RIBAVIRIN [Suspect]
     Indication: HEPATITIS C
     Dosage: 600 MG, BID
     Route: 048
     Dates: start: 20130222, end: 20130416
  3. PEGINTERFERON ALFA-2B [Suspect]
     Indication: HEPATITIS C
     Dosage: 120 MICROGRAM, QW
     Route: 058
     Dates: start: 20130222, end: 20130413
  4. TRUVADA [Concomitant]
     Dosage: 1 DF, QD
     Route: 048
     Dates: start: 20121130
  5. ISENTRESS [Concomitant]
     Dosage: 400 MG, BID
     Route: 048
     Dates: start: 20121130
  6. CETIRIZINE HYDROCHLORIDE [Concomitant]
     Indication: HYPERSENSITIVITY
     Dosage: 10 MG, PRN
     Route: 048
     Dates: start: 20120907
  7. ADVAIR [Concomitant]
     Indication: ASTHMA
     Dosage: UNK, PRN
     Dates: start: 20041202
  8. ALBUTEROL [Concomitant]
     Indication: ASTHMA
     Dosage: UNK, PRN
     Dates: start: 20041202
  9. OMEPRAZOLE [Concomitant]
     Dosage: 20 MG, QD
     Route: 048
     Dates: start: 20130401
  10. ATROVENT [Concomitant]
     Indication: ASTHMA
     Dosage: UNK
     Dates: start: 20041202

REACTIONS (1)
  - Pneumonia bacterial [Recovering/Resolving]
